FAERS Safety Report 12357663 (Version 1)
Quarter: 2016Q2

REPORT INFORMATION
  Report Type: Spontaneous
  Country: US (occurrence: US)
  Receive Date: 20160512
  Receipt Date: 20160512
  Transmission Date: 20160815
  Serious: No
  Sender: FDA-Public Use
  Company Number: US-BIOGEN-2016BI00208383

PATIENT

DRUGS (2)
  1. HYOSCYAMINE. [Concomitant]
     Active Substance: HYOSCYAMINE
     Indication: PRODUCT USED FOR UNKNOWN INDICATION
  2. TECFIDERA [Suspect]
     Active Substance: DIMETHYL FUMARATE
     Indication: MULTIPLE SCLEROSIS

REACTIONS (2)
  - Abdominal pain upper [Unknown]
  - General symptom [Unknown]
